FAERS Safety Report 12795722 (Version 1)
Quarter: 2016Q3

REPORT INFORMATION
  Report Type: Spontaneous
  Country: NL (occurrence: NL)
  Receive Date: 20160929
  Receipt Date: 20160929
  Transmission Date: 20161109
  Serious: Yes (Other)
  Sender: FDA-Public Use
  Company Number: NL-TEVA-691802ACC

PATIENT
  Age: 48 Year
  Sex: Male
  Weight: 90 kg

DRUGS (3)
  1. NON SPECIFIED DRUG [Concomitant]
     Active Substance: UNSPECIFIED INGREDIENT
     Dosage: STERKTE EN DOSERING NIET BEKEND
     Route: 048
  2. RANITIDINE TABLET 300MG [Suspect]
     Active Substance: RANITIDINE
     Indication: PRODUCT USED FOR UNKNOWN INDICATION
     Dosage: 300 MILLIGRAM DAILY; ONCE DAILY 1 PIECE(S)
     Route: 048
     Dates: start: 20160810, end: 20160820
  3. HYDROCHLOROTHIAZIDE. [Suspect]
     Active Substance: HYDROCHLOROTHIAZIDE
     Indication: HYPERTENSION
     Dosage: 1 DOSAGE FORMS DAILY; ONCE DAILY 1 PIECE(S)
     Route: 048
     Dates: start: 2000

REACTIONS (4)
  - Depression [Recovered/Resolved]
  - Hallucination, visual [Recovered/Resolved]
  - Suicidal ideation [Recovered/Resolved]
  - Delusion [Recovered/Resolved]

NARRATIVE: CASE EVENT DATE: 201608
